FAERS Safety Report 7145990-1 (Version None)
Quarter: 2010Q4

REPORT INFORMATION
  Report Type: 
  Country: None (occurrence: None)
  Receive Date: 20101208
  Receipt Date: 20101108
  Transmission Date: 20110411
  Serious: No
  Sender: FDA-Public Use
  Company Number: US-BAYER-2010-001116

PATIENT
  Sex: Female

DRUGS (2)
  1. ALEVE (CAPLET) [Suspect]
     Indication: ARTHRITIS
     Dosage: UNK UNK, IRR
     Route: 048
     Dates: start: 20100101, end: 20101101
  2. ATENOLOL [Concomitant]

REACTIONS (1)
  - OEDEMA PERIPHERAL [None]
